FAERS Safety Report 8595255-6 (Version None)
Quarter: 2012Q3

REPORT INFORMATION
  Report Type: 
  Country: None (occurrence: None)
  Receive Date: 20120815
  Receipt Date: 20120803
  Transmission Date: 20120928
  Serious: Yes (Other)
  Sender: FDA-Public Use
  Company Number: CA-JNJFOC-20120700801

PATIENT
  Sex: Male

DRUGS (13)
  1. METFORMIN HYDROCHLORIDE [Concomitant]
  2. XARELTO [Suspect]
     Indication: PRODUCT USED FOR UNKNOWN INDICATION
     Route: 048
     Dates: start: 20120514
  3. IRON [Concomitant]
  4. RAMIPRIL [Concomitant]
  5. ALFUZOSIN [Concomitant]
  6. LASIX [Concomitant]
  7. GLYBURIDE [Concomitant]
  8. PANTOPRAZOLE [Concomitant]
  9. NORVASC [Concomitant]
  10. METOPROLOL TARTRATE [Concomitant]
  11. TRAZODONE HYDROCHLORIDE [Concomitant]
  12. ATORVASTATIN [Concomitant]
  13. XARELTO [Suspect]
     Route: 048
     Dates: start: 20120517, end: 20120501

REACTIONS (5)
  - POLYP [None]
  - MELAENA [None]
  - CEREBROVASCULAR ACCIDENT [None]
  - HEADACHE [None]
  - HAEMOGLOBIN DECREASED [None]
